FAERS Safety Report 21412001 (Version 1)
Quarter: 2022Q4

REPORT INFORMATION
  Report Type: Spontaneous
  Country: US (occurrence: None)
  Receive Date: 20221004
  Receipt Date: 20221004
  Transmission Date: 20230113
  Serious: Yes (Hospitalization)
  Sender: FDA-Public Use
  Company Number: None

PATIENT
  Sex: Female

DRUGS (1)
  1. CAPECITABINE [Suspect]
     Active Substance: CAPECITABINE
     Indication: Pancreatic carcinoma
     Dosage: TAKE 2 TABLETS BY MOUTH TWICE DAILY MONDAY THROUGH FRIDAY ONLY UNTL END OF RADIATION?
     Route: 048
     Dates: start: 20220913

REACTIONS (2)
  - Therapy cessation [None]
  - Illness [None]
